FAERS Safety Report 9602140 (Version 2)
Quarter: 2013Q4

REPORT INFORMATION
  Report Type: Spontaneous
  Country: HR (occurrence: HR)
  Receive Date: 20131007
  Receipt Date: 20131223
  Transmission Date: 20140711
  Serious: Yes (Other)
  Sender: FDA-Public Use
  Company Number: HR-ELI_LILLY_AND_COMPANY-HR201310001290

PATIENT
  Sex: Female

DRUGS (4)
  1. ZYPADHERA [Suspect]
     Indication: SCHIZOAFFECTIVE DISORDER
     Dosage: UNK, UNKNOWN
     Route: 064
     Dates: start: 201207
  2. ZYPADHERA [Suspect]
     Dosage: 210 MG, MONTHLY (1/M)
     Route: 064
     Dates: start: 20121010, end: 201304
  3. LEVEMIR [Concomitant]
     Route: 064
  4. BROMERGON [Concomitant]
     Route: 063

REACTIONS (5)
  - Low birth weight baby [Unknown]
  - Thalamus haemorrhage [Unknown]
  - Periventricular leukomalacia [Unknown]
  - Foetal exposure during pregnancy [Recovered/Resolved]
  - Exposure during breast feeding [Unknown]
